FAERS Safety Report 8539552 (Version 5)
Quarter: 2012Q4

REPORT INFORMATION
  Report Type: 
  Country: IE (occurrence: IE)
  Receive Date: 20120502
  Receipt Date: 20120925
  Transmission Date: 20130627
  Serious: Yes (Other)
  Sender: FDA-Public Use
  Company Number: IE-AMGEN-IRLSP2012026649

PATIENT
  Age: 68 Year
  Sex: Female
  Weight: 44.45 kg

DRUGS (6)
  1. PROLIA [Suspect]
     Indication: OSTEOPOROSIS POSTMENOPAUSAL
     Dosage: 60 mg, qmo
     Route: 058
     Dates: start: 20120327
  2. IXPRIM [Concomitant]
     Dosage: UNK UNK, tid
  3. EVISTA [Concomitant]
     Dosage: UNK UNK, qd
  4. ZIMOVANE [Concomitant]
  5. XANAX [Concomitant]
     Dosage: UNK UNK, qd
  6. CALCICHEW D3 [Concomitant]
     Dosage: UNK UNK, bid

REACTIONS (5)
  - Pain in jaw [Recovered/Resolved]
  - Headache [Unknown]
  - Constipation [Unknown]
  - Aphagia [Unknown]
  - Depression [Unknown]
